FAERS Safety Report 6336779-1 (Version None)
Quarter: 2009Q3

REPORT INFORMATION
  Report Type: 
  Country: None (occurrence: None)
  Receive Date: 20090831
  Receipt Date: 20090831
  Transmission Date: 20100115
  Serious: Yes (Other)
  Sender: FDA-Public Use
  Company Number: None

PATIENT
  Age: 46 Year
  Sex: Female
  Weight: 117.9352 kg

DRUGS (12)
  1. ABILIFY [Suspect]
     Indication: BIPOLAR DISORDER
     Dosage: 20MG ONCE PER DAY PO
     Route: 048
     Dates: start: 20070101, end: 20090412
  2. ABILIFY [Suspect]
     Indication: DEPRESSION
     Dosage: 20MG ONCE PER DAY PO
     Route: 048
     Dates: start: 20070101, end: 20090412
  3. ALLEGRA [Concomitant]
  4. ROZEREM [Concomitant]
  5. ALPRAZOLAM [Concomitant]
  6. TIZANADINE [Concomitant]
  7. ETODOLAC [Concomitant]
  8. FENTANYL TRANSDERMAL SYSTEM [Concomitant]
  9. NORCO [Concomitant]
  10. SIMVASTATIN [Concomitant]
  11. DEPAKOTE [Concomitant]
  12. SELEGELINE [Concomitant]

REACTIONS (2)
  - ACTIVITIES OF DAILY LIVING IMPAIRED [None]
  - PARKINSON'S DISEASE [None]
